FAERS Safety Report 16852196 (Version 1)
Quarter: 2019Q3

REPORT INFORMATION
  Report Type: Spontaneous
  Country: US (occurrence: US)
  Receive Date: 20190925
  Receipt Date: 20190925
  Transmission Date: 20191005
  Serious: Yes (Other)
  Sender: FDA-Public Use
  Company Number: US-JNJFOC-20190922779

PATIENT
  Age: 77 Year
  Sex: Male
  Weight: 93.07 kg

DRUGS (3)
  1. SPORANOX [Suspect]
     Active Substance: ITRACONAZOLE
     Indication: HISTOPLASMOSIS
     Route: 048
     Dates: start: 2016
  2. SPORANOX [Suspect]
     Active Substance: ITRACONAZOLE
     Route: 048
  3. SPORANOX [Suspect]
     Active Substance: ITRACONAZOLE
     Indication: HISTOPLASMOSIS
     Route: 065

REACTIONS (3)
  - Eye disorder [Unknown]
  - Chronic lymphocytic leukaemia [Not Recovered/Not Resolved]
  - Chest discomfort [Not Recovered/Not Resolved]

NARRATIVE: CASE EVENT DATE: 201812
